FAERS Safety Report 5921065-1 (Version None)
Quarter: 2008Q4

REPORT INFORMATION
  Report Type: 
  Country: None (occurrence: None)
  Receive Date: 20081016
  Receipt Date: 20081015
  Transmission Date: 20090506
  Serious: No
  Sender: FDA-Public Use
  Company Number: GB-ASTRAZENECA-2008GB01958

PATIENT
  Age: 77 Year
  Sex: Male

DRUGS (2)
  1. QUETIAPINE FUMARATE [Suspect]
     Route: 048
     Dates: start: 20080901
  2. QUETIAPINE FUMARATE [Suspect]
     Route: 048
     Dates: end: 20081014

REACTIONS (2)
  - LEUKOPENIA [None]
  - NEUTROPENIA [None]
